FAERS Safety Report 8026874-3 (Version None)
Quarter: 2012Q1

REPORT INFORMATION
  Report Type: 
  Country: None (occurrence: None)
  Receive Date: 20120106
  Receipt Date: 20111229
  Transmission Date: 20120608
  Serious: No
  Sender: FDA-Public Use
  Company Number: US-PFIZER INC-2011316855

PATIENT
  Sex: Female
  Weight: 48 kg

DRUGS (4)
  1. ESTRING [Suspect]
     Indication: VULVOVAGINAL DRYNESS
     Dosage: UNK, EVERY 3 MONTHS
     Route: 067
     Dates: start: 20110601
  2. METHYLPHENIDATE [Concomitant]
     Indication: ATTENTION DEFICIT/HYPERACTIVITY DISORDER
     Dosage: 5 MG, 2X/DAY
  3. BUPROPION HYDROCHLORIDE [Concomitant]
     Indication: ATTENTION DEFICIT/HYPERACTIVITY DISORDER
     Dosage: 300 MG, DAILY
     Route: 048
  4. TRAZODONE HYDROCHLORIDE [Suspect]
     Indication: SLEEP DISORDER
     Dosage: 75 MG, DAILY
     Route: 048

REACTIONS (5)
  - POOR QUALITY DRUG ADMINISTERED [None]
  - DRUG INEFFECTIVE [None]
  - DRY EYE [None]
  - VULVOVAGINAL PRURITUS [None]
  - DRY SKIN [None]
